FAERS Safety Report 6273682-X (Version None)
Quarter: 2009Q3

REPORT INFORMATION
  Report Type: 
  Country: None (occurrence: None)
  Receive Date: 20090720
  Receipt Date: 20090708
  Transmission Date: 20100115
  Serious: Yes (Hospitalization)
  Sender: FDA-Public Use
  Company Number: FR-WYE-H10173409

PATIENT
  Sex: Female

DRUGS (7)
  1. CORDARONE [Suspect]
     Indication: ARRHYTHMIA SUPRAVENTRICULAR
     Dosage: LOADING DOSE OF 1600 MG
     Route: 048
     Dates: start: 20081117, end: 20081101
  2. CORDARONE [Suspect]
     Route: 048
     Dates: start: 20081101, end: 20090527
  3. LEXOMIL [Concomitant]
     Route: 048
  4. TAHOR [Concomitant]
     Route: 048
  5. CORVASAL [Concomitant]
     Route: 048
     Dates: start: 20090316
  6. DETENSIEL [Suspect]
     Indication: ISCHAEMIC CARDIOMYOPATHY
     Route: 048
     Dates: start: 20090316
  7. PREVISCAN [Concomitant]
     Route: 048

REACTIONS (2)
  - CHEST X-RAY ABNORMAL [None]
  - PERICARDITIS [None]
